FAERS Safety Report 8082012-2 (Version None)
Quarter: 2012Q1

REPORT INFORMATION
  Report Type: 
  Country: None (occurrence: None)
  Receive Date: 20120130
  Receipt Date: 20120123
  Transmission Date: 20120608
  Serious: Yes (Other)
  Sender: FDA-Public Use
  Company Number: PHHY2012GB005693

PATIENT
  Age: 62 Year
  Sex: Male

DRUGS (6)
  1. SIMVASTATIN [Concomitant]
     Dosage: 40 MG, QD
  2. ZOLPIDEM [Suspect]
     Indication: INSOMNIA
     Dosage: 10 MG, QD
     Route: 048
  3. LORATADINE [Concomitant]
     Dosage: 10 MG, QD
  4. AMLODIPINE [Concomitant]
     Dosage: 10 MG, QD
  5. BENDROFLUMETHIAZIDE [Concomitant]
     Dosage: 2.5 MG, QD
  6. PAROXETINE HYDROCHLORIDE [Suspect]
     Indication: DEPRESSION
     Dosage: 30 MG, UNK
     Route: 048

REACTIONS (5)
  - MEMORY IMPAIRMENT [None]
  - AMNESIA [None]
  - CONFUSIONAL STATE [None]
  - LOSS OF LIBIDO [None]
  - INSOMNIA [None]
